FAERS Safety Report 7428853-3 (Version None)
Quarter: 2011Q2

REPORT INFORMATION
  Report Type: 
  Country: None (occurrence: None)
  Receive Date: 20110421
  Receipt Date: 20110408
  Transmission Date: 20111010
  Serious: Yes (Other)
  Sender: FDA-Public Use
  Company Number: US-JNJFOC-20110304008

PATIENT
  Sex: Male
  Weight: 77.57 kg

DRUGS (5)
  1. REMICADE [Suspect]
     Indication: PSORIASIS
     Route: 042
  2. HYDROXYZINE [Concomitant]
     Indication: ANXIETY
     Route: 048
  3. MULTI-VITAMINS [Concomitant]
     Indication: MEDICAL DIET
     Route: 048
  4. LISINOPRIL [Concomitant]
     Indication: HYPERTENSION
     Route: 048
  5. LORTAB [Concomitant]
     Indication: PAIN
     Route: 048

REACTIONS (1)
  - BLADDER CANCER [None]
